FAERS Safety Report 7472607-9 (Version None)
Quarter: 2011Q2

REPORT INFORMATION
  Report Type: 
  Country: None (occurrence: None)
  Receive Date: 20110502
  Receipt Date: 20110420
  Transmission Date: 20111010
  Serious: Yes (Hospitalization, Disabling, Other)
  Sender: FDA-Public Use
  Company Number: 2010SP015815

PATIENT
  Age: 34 Year
  Sex: Female
  Weight: 70.3075 kg

DRUGS (5)
  1. METOPROLOL TARTRATE [Concomitant]
  2. FEXOFENADINE [Concomitant]
  3. SYNTHROID [Concomitant]
  4. CLOPIDOGREL [Concomitant]
  5. NUVARING [Suspect]
     Indication: CONTRACEPTION
     Dates: start: 20040129, end: 20060313

REACTIONS (31)
  - CONVULSION [None]
  - HAEMOPHILUS TEST POSITIVE [None]
  - HYPOAESTHESIA [None]
  - SINUS TACHYCARDIA [None]
  - CORONARY ARTERY OCCLUSION [None]
  - PARAESTHESIA [None]
  - REFUSAL OF TREATMENT BY PATIENT [None]
  - HYPERTENSION [None]
  - LACERATION [None]
  - MEMORY IMPAIRMENT [None]
  - SUPRAVENTRICULAR EXTRASYSTOLES [None]
  - PAPILLOMA VIRAL INFECTION [None]
  - BLOOD GLUCOSE INCREASED [None]
  - HYPOXIC-ISCHAEMIC ENCEPHALOPATHY [None]
  - CARDIO-RESPIRATORY ARREST [None]
  - DEPRESSION [None]
  - URINARY TRACT INFECTION [None]
  - POLYCYTHAEMIA [None]
  - VENTRICULAR EXTRASYSTOLES [None]
  - ABORTION INDUCED [None]
  - RESPIRATORY FAILURE [None]
  - PULMONARY EMBOLISM [None]
  - TRAUMATIC BRAIN INJURY [None]
  - SPUTUM CULTURE POSITIVE [None]
  - COGNITIVE DISORDER [None]
  - HAEMOGLOBIN DECREASED [None]
  - VISION BLURRED [None]
  - ACUTE MYOCARDIAL INFARCTION [None]
  - ACUTE RESPIRATORY DISTRESS SYNDROME [None]
  - ANXIETY [None]
  - TREATMENT NONCOMPLIANCE [None]
